FAERS Safety Report 19611514 (Version 1)
Quarter: 2021Q3

REPORT INFORMATION
  Report Type: Spontaneous
  Country: US (occurrence: US)
  Receive Date: 20210726
  Receipt Date: 20210726
  Transmission Date: 20211014
  Serious: Yes (Other)
  Sender: FDA-Public Use
  Company Number: US-TEVA-2021-US-1935075

PATIENT
  Sex: Female

DRUGS (4)
  1. FLUOXETINE [Suspect]
     Active Substance: FLUOXETINE HYDROCHLORIDE
     Indication: ANXIETY
     Dosage: 10 MILLIGRAM DAILY;
     Route: 065
     Dates: start: 202103
  2. TIZANIDINE. [Suspect]
     Active Substance: TIZANIDINE
     Indication: HEAD TITUBATION
     Route: 065
  3. TIZANIDINE. [Suspect]
     Active Substance: TIZANIDINE
     Indication: MUSCULOSKELETAL STIFFNESS
  4. TIZANIDINE. [Suspect]
     Active Substance: TIZANIDINE
     Indication: HEAD TITUBATION

REACTIONS (8)
  - Off label use [Unknown]
  - Nausea [Unknown]
  - Speech disorder [Not Recovered/Not Resolved]
  - Product supply issue [Unknown]
  - Confusional state [Not Recovered/Not Resolved]
  - Product dose omission issue [Unknown]
  - Dyspnoea [Unknown]
  - Hypoaesthesia [Unknown]

NARRATIVE: CASE EVENT DATE: 202103
